FAERS Safety Report 12936166 (Version 1)
Quarter: 2016Q4

REPORT INFORMATION
  Report Type: Spontaneous
  Country: US (occurrence: US)
  Receive Date: 20161113
  Receipt Date: 20161113
  Transmission Date: 20170207
  Serious: Yes (Other)
  Sender: FDA-Public Use
  Company Number: None

PATIENT
  Age: 21 Year
  Sex: Female
  Weight: 54 kg

DRUGS (2)
  1. CIPROFLOXACIN HCL 500 MG TAB [Suspect]
     Active Substance: CIPROFLOXACIN HYDROCHLORIDE
     Indication: KIDNEY INFECTION
     Dosage: ?          QUANTITY:8 TABLET(S);?
     Route: 048
     Dates: start: 20160728, end: 20160801
  2. IRON TABLETS TABLET [Concomitant]
     Active Substance: IRON

REACTIONS (2)
  - White blood cell count decreased [None]
  - Tendonitis [None]

NARRATIVE: CASE EVENT DATE: 20160801
